FAERS Safety Report 5956549-3 (Version None)
Quarter: 2008Q4

REPORT INFORMATION
  Report Type: 
  Country: None (occurrence: None)
  Receive Date: 20081118
  Receipt Date: 20081113
  Transmission Date: 20090506
  Serious: Yes (Hospitalization, Other)
  Sender: FDA-Public Use
  Company Number: FI-WYE-G02477808

PATIENT
  Sex: Male
  Weight: 61 kg

DRUGS (4)
  1. REFACTO [Suspect]
     Indication: FACTOR VIII DEFICIENCY
     Route: 042
     Dates: start: 20010601, end: 20061001
  2. REFACTO [Suspect]
     Route: 042
     Dates: start: 20061001, end: 20081001
  3. REFACTO [Suspect]
     Route: 042
     Dates: start: 20081001, end: 20081017
  4. REFACTO [Suspect]
     Dosage: UNKNOWN DOSE GIVEN ON DEMAND
     Route: 042
     Dates: start: 20061001

REACTIONS (4)
  - ARTHRALGIA [None]
  - FACTOR VIII INHIBITION [None]
  - MUSCLE HAEMORRHAGE [None]
  - PAIN IN EXTREMITY [None]
